FAERS Safety Report 8311222-1 (Version None)
Quarter: 2012Q2

REPORT INFORMATION
  Report Type: 
  Country: None (occurrence: None)
  Receive Date: 20120425
  Receipt Date: 20120117
  Transmission Date: 20120825
  Serious: No
  Sender: FDA-Public Use
  Company Number: US-MYLANLABS-2012S1001396

PATIENT
  Age: 77 Year
  Sex: Female

DRUGS (2)
  1. CLOTRIMAZOLE AND BETAMETHASONE DIPROPIONATE [Suspect]
     Indication: FUNGAL INFECTION
     Route: 061
     Dates: start: 20120113
  2. INDAPAMIDE [Suspect]
     Indication: BLOOD PRESSURE
     Route: 048
     Dates: start: 20120112

REACTIONS (5)
  - DYSPNOEA [None]
  - HEADACHE [None]
  - DIZZINESS [None]
  - INCORRECT DOSE ADMINISTERED [None]
  - HEART RATE IRREGULAR [None]
